FAERS Safety Report 15088844 (Version 1)
Quarter: 2018Q2

REPORT INFORMATION
  Report Type: Report from Study
  Country: None (occurrence: DE)
  Receive Date: 20180629
  Receipt Date: 20180629
  Transmission Date: 20180711
  Serious: Yes (Hospitalization)
  Sender: FDA-Public Use
  Company Number: DE-ABBVIE-18K-062-2383924-00

PATIENT
  Age: 76 Year
  Sex: Female

DRUGS (16)
  1. BISOHEXAL [Concomitant]
     Active Substance: BISOPROLOL FUMARATE
     Indication: HYPERTENSION
     Dosage: FREQUENCY: 0.5-0.5
     Route: 048
     Dates: start: 201806
  2. CLOZAPIN [Concomitant]
     Active Substance: CLOZAPINE
     Indication: TREMOR
     Dosage: 0.5 IN 1 DAYS
  3. TARGIN [Concomitant]
     Active Substance: NALOXONE HYDROCHLORIDE\OXYCODONE HYDROCHLORIDE
     Indication: PRODUCT USED FOR UNKNOWN INDICATION
     Dosage: 10MG/5MG
     Route: 048
     Dates: start: 20180606
  4. DUODOPA [Suspect]
     Active Substance: CARBIDOPA\LEVODOPA
     Route: 050
  5. DUODOPA [Suspect]
     Active Substance: CARBIDOPA\LEVODOPA
     Dosage: MD: 7.0 ML; CRD: 1.3 ML/H; ED: 1.0 ML
     Route: 050
     Dates: end: 201806
  6. VITAMIN B COMPLEX [Concomitant]
     Active Substance: CYANOCOBALAMIN\DEXPANTHENOL\NIACINAMIDE\PYRIDOXINE HYDROCHLORIDE\RIBOFLAVIN 5^-PHOSPHATE SODIUM\THIAMINE HYDROCHLORIDE\VITAMIN B COMPLEX
     Indication: PRODUCT USED FOR UNKNOWN INDICATION
     Route: 065
  7. CLEXANE 4000 [Concomitant]
     Dates: start: 201806
  8. METOPROLOL. [Concomitant]
     Active Substance: METOPROLOL
     Indication: PRODUCT USED FOR UNKNOWN INDICATION
     Dates: end: 201806
  9. HYDROCHLOROTHIAZID [Concomitant]
     Active Substance: HYDROCHLOROTHIAZIDE
     Indication: HYPERTENSION
     Route: 048
  10. RIVASTIGMIN [Concomitant]
     Active Substance: RIVASTIGMINE
     Indication: DEMENTIA
     Route: 048
  11. IPRATROPIUMBROMID [Concomitant]
     Active Substance: IPRATROPIUM BROMIDE
     Indication: PRODUCT USED FOR UNKNOWN INDICATION
     Dates: start: 201806
  12. MADOPAR DEPOT [Concomitant]
     Active Substance: BENSERAZIDE HYDROCHLORIDE\LEVODOPA
     Indication: PARKINSON^S DISEASE
     Dosage: 100/25MG
  13. CLEXANE 4000 [Concomitant]
     Indication: PRODUCT USED FOR UNKNOWN INDICATION
  14. DUODOPA [Suspect]
     Active Substance: CARBIDOPA\LEVODOPA
     Indication: PARKINSON^S DISEASE
     Dosage: STILL IN ADJUSTMENT PHASE
     Route: 050
     Dates: start: 20180605
  15. DUODOPA [Suspect]
     Active Substance: CARBIDOPA\LEVODOPA
     Dosage: MD: 7.0 ML; CRD: 1.2 ML/H; ED: 1.0 ML
     Route: 050
     Dates: start: 201806
  16. CLEXANE 4000 [Concomitant]
     Dates: start: 201806, end: 201806

REACTIONS (18)
  - Oxygen saturation decreased [Unknown]
  - Tremor [Unknown]
  - Duodenal stenosis [Unknown]
  - Renal cyst [Unknown]
  - Thyroid cyst [Unknown]
  - Abdominal hernia [Not Recovered/Not Resolved]
  - C-reactive protein increased [Not Recovered/Not Resolved]
  - Acute abdomen [Unknown]
  - Tachycardia [Unknown]
  - Intraductal papilloma of breast [Unknown]
  - Mobility decreased [Not Recovered/Not Resolved]
  - Stoma site haemorrhage [Not Recovered/Not Resolved]
  - Pneumonitis [Unknown]
  - Post procedural haemorrhage [Unknown]
  - Cholecystitis [Not Recovered/Not Resolved]
  - Pneumonia aspiration [Recovered/Resolved]
  - Atelectasis [Unknown]
  - Device issue [Unknown]

NARRATIVE: CASE EVENT DATE: 201806
